FAERS Safety Report 8041664-3 (Version None)
Quarter: 2012Q1

REPORT INFORMATION
  Report Type: 
  Country: None (occurrence: None)
  Receive Date: 20120112
  Receipt Date: 20120104
  Transmission Date: 20120608
  Serious: Yes (Life-Threatening, Hospitalization, Other)
  Sender: FDA-Public Use
  Company Number: CH-ELI_LILLY_AND_COMPANY-CH201201001599

PATIENT
  Age: 75 Year
  Sex: Female

DRUGS (5)
  1. BALDRIPARAN                        /00712901/ [Concomitant]
     Dosage: 1 DF, QD
     Route: 048
     Dates: end: 20111101
  2. MADOPAR [Concomitant]
     Indication: PARKINSON'S DISEASE
     Dosage: 750 MG, QD
     Route: 048
  3. TEMAZEPAM [Concomitant]
     Dosage: 20 MG, QD
     Route: 048
     Dates: end: 20111101
  4. ZYPREXA [Suspect]
     Dosage: 5 MG, QD
     Route: 048
     Dates: start: 20111101, end: 20111101
  5. FLUDAPAMID [Concomitant]
     Dosage: 2.5 MG, QD
     Route: 048
     Dates: start: 20110101, end: 20111124

REACTIONS (7)
  - ABDOMINAL PAIN [None]
  - VOMITING [None]
  - CONSTIPATION [None]
  - HYPONATRAEMIA [None]
  - HYPOKALAEMIA [None]
  - DEPRESSED LEVEL OF CONSCIOUSNESS [None]
  - PNEUMONIA ASPIRATION [None]
